FAERS Safety Report 13195562 (Version 1)
Quarter: 2017Q1

REPORT INFORMATION
  Report Type: Spontaneous
  Country: US (occurrence: US)
  Receive Date: 20170207
  Receipt Date: 20170207
  Transmission Date: 20170428
  Serious: Yes (Other)
  Sender: FDA-Public Use
  Company Number: None

PATIENT
  Age: 25 Year
  Sex: Female
  Weight: 51.3 kg

DRUGS (1)
  1. NEXPLANON [Suspect]
     Active Substance: ETONOGESTREL
     Indication: CONTRACEPTION
     Dosage: 1 INSERTED INTO SKIN,PERMANENT  GIVEN INTO/UNDER THE SKIN
     Dates: start: 20160310, end: 20170207

REACTIONS (3)
  - Haemorrhage [None]
  - Dysmenorrhoea [None]
  - Menorrhagia [None]

NARRATIVE: CASE EVENT DATE: 20170119
